FAERS Safety Report 25876610 (Version 1)
Quarter: 2025Q4

REPORT INFORMATION
  Report Type: Spontaneous
  Country: US (occurrence: US)
  Receive Date: 20251003
  Receipt Date: 20251003
  Transmission Date: 20260118
  Serious: No
  Sender: Kenvue
  Company Number: US-KENVUE-20250914766

PATIENT
  Sex: Female

DRUGS (1)
  1. TYLENOL [Suspect]
     Active Substance: ACETAMINOPHEN
     Indication: Product used for unknown indication
     Dosage: 15 DOSAGE FORM
     Route: 048

REACTIONS (2)
  - Exposure during pregnancy [Unknown]
  - Overdose [Unknown]

NARRATIVE: CASE EVENT DATE: 20250924
